FAERS Safety Report 16158485 (Version 3)
Quarter: 2019Q2

REPORT INFORMATION
  Report Type: Spontaneous
  Country: DE (occurrence: DE)
  Receive Date: 20190404
  Receipt Date: 20190416
  Transmission Date: 20190711
  Serious: Yes (Other)
  Sender: FDA-Public Use
  Company Number: DE-PFIZER INC-2019141885

PATIENT
  Sex: Male

DRUGS (8)
  1. PANTOPRAZOLE [Suspect]
     Active Substance: PANTOPRAZOLE
     Dosage: 1 DF, QD (1-0-0)
     Route: 065
  2. BISOPROLOL [Suspect]
     Active Substance: BISOPROLOL
     Dosage: 1 DF, QD (1-0-0)
     Route: 065
  3. CLOPIDOGREL [Suspect]
     Active Substance: CLOPIDOGREL BISULFATE
     Dosage: 1 DF, QD (1-0-0)
     Route: 065
  4. AMLODIPIN 1A PHARMA GMBH [Suspect]
     Active Substance: AMLODIPINE BESYLATE
     Dosage: 1 DF, QD (1-0-0)
     Route: 065
  5. METFORMIN HCL [Suspect]
     Active Substance: METFORMIN HYDROCHLORIDE
     Dosage: 1 DF, QD (1-0-0)
     Route: 065
  6. RAMIPRIL 1A PHARMA [Suspect]
     Active Substance: RAMIPRIL
     Dosage: 1 DF, BID (1-0-1)
     Route: 065
  7. ASPIRIN. [Suspect]
     Active Substance: ASPIRIN
     Dosage: 1 DF, QD (1-0-0)
     Route: 065
  8. DOXAZOSIN MESILATE [Suspect]
     Active Substance: DOXAZOSIN MESYLATE
     Dosage: 1 DF, QD (1-0-0)
     Route: 065

REACTIONS (1)
  - Brain stem infarction [Unknown]

NARRATIVE: CASE EVENT DATE: 201902
